FAERS Safety Report 9636583 (Version 3)
Quarter: 2014Q3

REPORT INFORMATION
  Report Type: Spontaneous
  Country: US (occurrence: US)
  Receive Date: 20131021
  Receipt Date: 20140908
  Transmission Date: 20150326
  Serious: Yes (Hospitalization, Disabling, Other)
  Sender: FDA-Public Use
  Company Number: US-009507513-1310USA005500

PATIENT
  Sex: Female

DRUGS (2)
  1. FOSAMAX [Suspect]
     Active Substance: ALENDRONATE SODIUM
     Indication: OSTEOPOROSIS
     Dosage: 70 MG, WEEKLY
     Route: 048
     Dates: start: 20060124, end: 200711
  2. ALENDRONATE SODIUM. [Suspect]
     Active Substance: ALENDRONATE SODIUM
     Indication: OSTEOPOROSIS
     Dosage: 70 MG, WEEKLY
     Route: 048
     Dates: start: 200801, end: 2011

REACTIONS (6)
  - Vascular operation [Unknown]
  - Myocardial infarction [Unknown]
  - Gallbladder operation [Unknown]
  - Femur fracture [Not Recovered/Not Resolved]
  - Diabetes mellitus [Unknown]
  - Intramedullary rod insertion [Unknown]

NARRATIVE: CASE EVENT DATE: 2008
